FAERS Safety Report 6696861-6 (Version None)
Quarter: 2010Q2

REPORT INFORMATION
  Report Type: 
  Country: None (occurrence: None)
  Receive Date: 20100420
  Receipt Date: 20090226
  Transmission Date: 20101027
  Serious: Yes (Other)
  Sender: FDA-Public Use
  Company Number: SPV1-2009-00328

PATIENT
  Age: 70 Year
  Sex: Female

DRUGS (1)
  1. LIALDA [Suspect]
     Indication: CROHN'S DISEASE
     Dosage: DF, 1X/DAY:QD, ORAL
     Route: 048

REACTIONS (2)
  - OFF LABEL USE [None]
  - PLATELET COUNT DECREASED [None]
